FAERS Safety Report 6428937-2 (Version None)
Quarter: 2009Q4

REPORT INFORMATION
  Report Type: 
  Country: None (occurrence: None)
  Receive Date: 20091104
  Receipt Date: 20091104
  Transmission Date: 20100525
  Serious: No
  Sender: FDA-Public Use
  Company Number: None

PATIENT
  Age: 45 Year
  Sex: Female
  Weight: 68.2 kg

DRUGS (1)
  1. WELLBUTRIN [Suspect]
     Indication: DEPRESSION
     Dosage: 100MG THREE TIMES DAIL ORAL
     Route: 048
     Dates: start: 20080701, end: 20090101

REACTIONS (3)
  - MUSCLE STRAIN [None]
  - MYALGIA [None]
  - PAIN IN EXTREMITY [None]
